FAERS Safety Report 8942080 (Version 3)
Quarter: 2013Q1

REPORT INFORMATION
  Report Type: Spontaneous
  Country: US (occurrence: US)
  Receive Date: 20121130
  Receipt Date: 20130215
  Transmission Date: 20140127
  Serious: Yes (Other)
  Sender: FDA-Public Use
  Company Number: US-GLAXOSMITHKLINE-A0999994A

PATIENT
  Age: 48 Year
  Sex: Male

DRUGS (3)
  1. LAMICTAL [Suspect]
     Indication: BIPOLAR DISORDER
     Dosage: 400MG PER DAY
     Route: 048
     Dates: start: 201202, end: 201203
  2. LAMOTRIGINE [Suspect]
     Indication: BIPOLAR DISORDER
     Dosage: 300MG PER DAY
     Route: 048
     Dates: start: 201201, end: 201202
  3. NEFAZODONE [Concomitant]

REACTIONS (10)
  - Cognitive disorder [Recovered/Resolved]
  - Hangover [Recovered/Resolved]
  - Nausea [Recovered/Resolved]
  - Slow speech [Recovered/Resolved]
  - Headache [Recovered/Resolved]
  - Dry mouth [Recovered/Resolved]
  - Mania [Recovered/Resolved]
  - Drug ineffective [Unknown]
  - Off label use [Unknown]
  - Drug intolerance [Recovered/Resolved]
